FAERS Safety Report 4869747-7 (Version None)
Quarter: 2005Q4

REPORT INFORMATION
  Report Type: 
  Country: None (occurrence: None)
  Receive Date: 20051223
  Receipt Date: 20051206
  Transmission Date: 20060501
  Serious: Yes (Other)
  Sender: FDA-Public Use
  Company Number: USA050189167

PATIENT
  Age: 79 Year
  Sex: Female

DRUGS (4)
  1. FORTEO [Suspect]
     Indication: OSTEOPOROSIS
     Dosage: 20 UG, DAILY (1/D), SUBCUTANEOUS
     Route: 058
     Dates: start: 20041101
  2. FORTEO PEN, 250 MCG/ML(3ML) (FORTEO PEN 250MCG/ML (3ML)) [Concomitant]
  3. PEN,DISPOSABLE [Concomitant]
  4. FORTEO PEN, 250MCG/ML(3ML) (FORTEO PEN 250MCG/ML (3ML)) PEN DISPOSABLE [Concomitant]

REACTIONS (4)
  - DIFFICULTY IN WALKING [None]
  - DYSGEUSIA [None]
  - PELVIC FRACTURE [None]
  - PHARMACEUTICAL PRODUCT COMPLAINT [None]
